FAERS Safety Report 8829666 (Version 2)
Quarter: 2012Q4

REPORT INFORMATION
  Report Type: 
  Country: US (occurrence: US)
  Receive Date: 20121008
  Receipt Date: 20121031
  Transmission Date: 20130627
  Serious: Yes (Hospitalization)
  Sender: FDA-Public Use
  Company Number: US-ASTRAZENECA-2012SE75269

PATIENT
  Age: 31 Year
  Sex: Female
  Weight: 116.6 kg

DRUGS (38)
  1. KLONOPIN [Concomitant]
     Indication: PANIC ATTACK
  2. PROZAC [Concomitant]
     Indication: DEPRESSION
     Route: 048
     Dates: start: 201207
  3. PROZAC [Concomitant]
     Indication: DEPRESSION
     Route: 048
  4. CYMBALTA [Concomitant]
     Indication: FIBROMYALGIA
     Route: 048
  5. CYMBALTA [Concomitant]
     Indication: DEPRESSION
     Route: 048
  6. CYMBALTA [Concomitant]
     Indication: FIBROMYALGIA
     Route: 048
  7. CYMBALTA [Concomitant]
     Indication: DEPRESSION
     Route: 048
  8. RITALIN [Concomitant]
     Indication: SLEEP DISORDER
  9. RITALIN [Concomitant]
     Indication: POOR QUALITY SLEEP
  10. RITALIN [Concomitant]
     Indication: SLEEP DISORDER
     Dates: start: 2011
  11. RITALIN [Concomitant]
     Indication: POOR QUALITY SLEEP
     Dates: start: 2011
  12. TRAZADONE [Concomitant]
     Indication: SLEEP DISORDER
     Route: 048
  13. TRAZADONE [Concomitant]
     Indication: SLEEP DISORDER
     Route: 048
  14. TRAZADONE [Concomitant]
     Indication: SLEEP DISORDER
     Route: 048
  15. TRAZADONE [Concomitant]
     Indication: SLEEP DISORDER
     Dates: start: 2008
  16. TRAZADONE [Concomitant]
     Indication: SLEEP DISORDER
  17. ZANAFLEX [Concomitant]
     Indication: MUSCLE SPASMS
     Dates: start: 2008
  18. ZANAFLEX [Concomitant]
     Indication: MYALGIA
     Dates: start: 2008
  19. ZANAFLEX [Concomitant]
     Indication: PAIN
     Dates: start: 2008
  20. ZANAFLEX [Concomitant]
     Indication: MUSCLE SPASMS
     Route: 048
  21. ZANAFLEX [Concomitant]
     Indication: MYALGIA
     Route: 048
  22. ZANAFLEX [Concomitant]
     Indication: PAIN
     Route: 048
  23. DEPAKOTE [Concomitant]
  24. ABILIFY [Concomitant]
     Indication: MOOD SWINGS
     Route: 048
  25. PAXIL [Concomitant]
  26. MIDODRINE [Concomitant]
  27. PRIMATENE [Concomitant]
     Dosage: 5 MG, EVERY SIX HOURS
  28. PROTONIX [Concomitant]
     Route: 048
  29. SEROQUEL XR [Suspect]
     Indication: FIBROMYALGIA
     Route: 048
     Dates: start: 201208
  30. SEROQUEL XR [Suspect]
     Indication: FIBROMYALGIA
     Route: 048
     Dates: start: 20120821, end: 20120828
  31. SEROQUEL XR [Suspect]
     Indication: FIBROMYALGIA
     Route: 048
     Dates: start: 20120828, end: 20120912
  32. KLONOPIN [Concomitant]
     Indication: ANXIETY
     Dosage: 2 MG TWICE DAILY TO THREE TIMES DAILY
     Route: 048
  33. KLONOPIN [Concomitant]
     Indication: PANIC ATTACK
     Dosage: 2 MG TWICE DAILY TO THREE TIMES DAILY
     Route: 048
  34. KLONOPIN [Concomitant]
     Indication: ANXIETY
     Route: 048
  35. KLONOPIN [Concomitant]
     Indication: PANIC ATTACK
     Route: 048
  36. KLONOPIN [Concomitant]
     Indication: ANXIETY
     Dosage: 2 MG, BID, PRN, 4 MG
     Route: 048
     Dates: start: 2010
  37. KLONOPIN [Concomitant]
     Indication: PANIC ATTACK
     Dosage: 2 MG, BID, PRN, 4 MG
     Route: 048
     Dates: start: 2010
  38. KLONOPIN [Concomitant]
     Indication: ANXIETY

REACTIONS (14)
  - Syncope [Unknown]
  - Orthostatic hypotension [Unknown]
  - Bradycardia [Unknown]
  - Pain [Unknown]
  - Chest pain [Unknown]
  - Asthenia [Unknown]
  - Malaise [Unknown]
  - Hallucination [Unknown]
  - Toothache [Unknown]
  - Anxiety [Unknown]
  - Dizziness [Unknown]
  - Presyncope [Unknown]
  - Sleep disorder [Unknown]
  - Fatigue [Unknown]
